FAERS Safety Report 9474226 (Version 2)
Quarter: 2013Q4

REPORT INFORMATION
  Report Type: Spontaneous
  Country: US (occurrence: US)
  Receive Date: 20130823
  Receipt Date: 20131112
  Transmission Date: 20140711
  Serious: Yes (Other)
  Sender: FDA-Public Use
  Company Number: US-BAYER-2013-102176

PATIENT
  Age: 34 Year
  Sex: Female
  Weight: 68.03 kg

DRUGS (21)
  1. MIRENA [Suspect]
     Indication: CONTRACEPTION
     Dosage: 20 MCG/24HR, CONT
     Route: 015
     Dates: start: 201207, end: 20130219
  2. CYMBALTA [Concomitant]
     Indication: DEPRESSION
     Dosage: UNK
     Dates: start: 2008, end: 2013
  3. PROZAC [Concomitant]
     Indication: DEPRESSION
     Dosage: UNK
     Dates: start: 2008, end: 2013
  4. VICODIN [Concomitant]
     Indication: PAIN
     Dosage: UNK
     Dates: start: 2008, end: 2013
  5. METHADONE [Concomitant]
     Indication: PAIN
     Dosage: 105 MG,DAILY
     Route: 048
     Dates: start: 2008, end: 2013
  6. KLONOPIN [Concomitant]
     Indication: ANXIETY
     Dosage: UNK
     Dates: start: 2013
  7. TRAZODONE [Concomitant]
     Indication: SLEEP DISORDER
     Dosage: 300 MG, UNK
     Route: 048
  8. TRAZODONE [Concomitant]
     Indication: ANXIETY
  9. DIVALPROEX [Concomitant]
     Indication: DEPRESSION
     Dosage: 500 MG, UNK
     Route: 048
     Dates: start: 20130219
  10. DIVALPROEX [Concomitant]
     Indication: BIPOLAR DISORDER
  11. DIVALPROEX [Concomitant]
     Indication: MIGRAINE
  12. OMEPRAZOLE [Concomitant]
     Dosage: 10 MG, UNK
  13. ZOFRAN [Concomitant]
     Indication: NAUSEA
     Dosage: UNK
     Dates: start: 2013
  14. CARBIDOPA W/LEVODOPA [Concomitant]
     Indication: PARKINSON^S DISEASE
  15. BACLOFEN [Concomitant]
  16. CITALOPRAM [Concomitant]
  17. DULOXETINE [Concomitant]
  18. HYDROCODONE W/ACETAMINOPHEN [Concomitant]
  19. IBUPROFEN [Concomitant]
  20. MEDROXYPROGESTERONE [Concomitant]
  21. MONTELUKAST [Concomitant]

REACTIONS (11)
  - Uterine perforation [None]
  - Genital haemorrhage [None]
  - Injury [None]
  - Pain [None]
  - Emotional distress [None]
  - Abdominal pain lower [None]
  - Depression [None]
  - Anxiety [None]
  - Infertility female [None]
  - Medical device complication [None]
  - Device dislocation [None]
